FAERS Safety Report 8108022-4 (Version None)
Quarter: 2011Q4

REPORT INFORMATION
  Report Type: 
  Country: None (occurrence: None)
  Receive Date: 20111227
  Receipt Date: 20111012
  Transmission Date: 20120403
  Serious: Yes (Other)
  Sender: FDA-Public Use
  Company Number: PHEH2011US05545

PATIENT
  Sex: Female
  Weight: 61.7 kg

DRUGS (3)
  1. AMPYRA [Concomitant]
  2. GILENYA [Suspect]
     Indication: MULTIPLE SCLEROSIS
     Dosage: 0.5 MG, EVERYDAY, ORAL
     Route: 048
     Dates: start: 20110429
  3. RITALIN [Concomitant]

REACTIONS (3)
  - FALL [None]
  - BALANCE DISORDER [None]
  - ABSCESS LIMB [None]
